FAERS Safety Report 13081266 (Version 1)
Quarter: 2017Q1

REPORT INFORMATION
  Report Type: Spontaneous
  Country: US (occurrence: US)
  Receive Date: 20170103
  Receipt Date: 20170103
  Transmission Date: 20170428
  Serious: Yes (Other)
  Sender: FDA-Public Use
  Company Number: US-SUPERNUS PHARMACEUTICALS, INC.-2016SUP00196

PATIENT
  Age: 23 Year
  Sex: Male
  Weight: 73.16 kg

DRUGS (7)
  1. TROKENDI XR [Concomitant]
     Active Substance: TOPIRAMATE
     Dosage: UNK MG, UNK
  2. ZANTAC [Concomitant]
     Active Substance: RANITIDINE HYDROCHLORIDE
     Dosage: UNK MG, UNK
  3. OXTELLAR XR [Suspect]
     Active Substance: OXCARBAZEPINE
     Dosage: 1800 MG, 1X/DAY
  4. OXTELLAR XR [Suspect]
     Active Substance: OXCARBAZEPINE
     Indication: PARTIAL SEIZURES
     Dosage: 1950 MG, 1X/DAY
     Route: 048
     Dates: start: 201503, end: 2016
  5. ONFI [Concomitant]
     Active Substance: CLOBAZAM
     Dosage: UNK MG, UNK
  6. ONFI [Concomitant]
     Active Substance: CLOBAZAM
     Dosage: 20 MG, UNK
  7. SERTRALINE [Concomitant]
     Active Substance: SERTRALINE HYDROCHLORIDE
     Dosage: 150 UNK, UNK

REACTIONS (3)
  - Scar [Not Recovered/Not Resolved]
  - Tourette^s disorder [Not Recovered/Not Resolved]
  - Petit mal epilepsy [Not Recovered/Not Resolved]

NARRATIVE: CASE EVENT DATE: 201611
